FAERS Safety Report 19981325 (Version 2)
Quarter: 2022Q1

REPORT INFORMATION
  Report Type: Spontaneous
  Country: JP (occurrence: JP)
  Receive Date: 20211022
  Receipt Date: 20220128
  Transmission Date: 20220423
  Serious: Yes (Death, Hospitalization, Other)
  Sender: FDA-Public Use
  Company Number: JP-LUPIN PHARMACEUTICALS INC.-2021-20074

PATIENT
  Age: 2 Day
  Sex: Female
  Weight: 1.928 kg

DRUGS (8)
  1. PHENYTOIN SODIUM [Suspect]
     Active Substance: PHENYTOIN SODIUM
     Indication: Status epilepticus
     Dosage: 400 MILLIGRAM,200 MG/KG/30 MIN (400 MG/30 MIN)
     Route: 042
  2. PHENYTOIN SODIUM [Suspect]
     Active Substance: PHENYTOIN SODIUM
     Dosage: 80 MILLIGRAM CONTINUOUS
     Route: 065
  3. PHENOBARBITAL [Concomitant]
     Active Substance: PHENOBARBITAL
     Indication: Seizure
     Dosage: 20 MILLIGRAM/KILOGRAM
     Route: 042
  4. PHENOBARBITAL [Concomitant]
     Active Substance: PHENOBARBITAL
     Dosage: 10 MILLIGRAM/KILOGRAM
     Route: 042
  5. MIDAZOLAM [Concomitant]
     Active Substance: MIDAZOLAM
     Indication: Seizure
     Dosage: 0.1 MILLIGRAM/KILOGRAM CONTINUOUS INFUSION
     Route: 042
  6. MIDAZOLAM [Concomitant]
     Active Substance: MIDAZOLAM
     Dosage: 0.4 MILLIGRAM/KILOGRAM CONTINUOUS, MAXIMUM DOSE
     Route: 042
  7. CAFFEINE [Concomitant]
     Active Substance: CAFFEINE
     Indication: Product used for unknown indication
     Dosage: UNK
     Route: 065
  8. AMPICILLIN [Concomitant]
     Active Substance: AMPICILLIN
     Indication: Product used for unknown indication
     Dosage: UNK
     Route: 065

REACTIONS (15)
  - Overdose [Fatal]
  - Toxicity to various agents [Fatal]
  - Hypotension [Fatal]
  - Cardiac arrest neonatal [Fatal]
  - Dilatation ventricular [Fatal]
  - Intraventricular haemorrhage [Fatal]
  - Subarachnoid haemorrhage [Fatal]
  - Lung opacity [Fatal]
  - Ascites [Fatal]
  - Abdominal distension [Fatal]
  - Conjunctival pallor [Fatal]
  - Haematoma [Fatal]
  - Cerebral disorder [Fatal]
  - Product prescribing issue [Unknown]
  - Dose calculation error [Unknown]
